FAERS Safety Report 9632631 (Version 2)
Quarter: 2014Q1

REPORT INFORMATION
  Report Type: Spontaneous
  Country: US (occurrence: US)
  Receive Date: 20131018
  Receipt Date: 20140116
  Transmission Date: 20141002
  Serious: Yes (Other)
  Sender: FDA-Public Use
  Company Number: US-GLAXOSMITHKLINE-A1045946A

PATIENT
  Age: 69 Year
  Sex: Male
  Weight: 120.5 kg

DRUGS (2)
  1. AVANDIA [Suspect]
     Indication: BLOOD GLUCOSE
     Dosage: 8MG PER DAY
     Route: 048
  2. NOVOLIN 70/30 [Concomitant]
     Dosage: 30UNIT TWICE PER DAY
     Route: 058

REACTIONS (7)
  - Coronary artery bypass [Unknown]
  - Oxygen saturation decreased [Recovered/Resolved]
  - Blood glucose abnormal [Recovered/Resolved]
  - Headache [Recovered/Resolved]
  - Dyspnoea exertional [Recovered/Resolved]
  - Blood glucose increased [Recovered/Resolved]
  - Hypoxia [Recovered/Resolved]
